FAERS Safety Report 11467870 (Version 1)
Quarter: 2015Q3

REPORT INFORMATION
  Report Type: Spontaneous
  Country: US (occurrence: US)
  Receive Date: 20150908
  Receipt Date: 20150908
  Transmission Date: 20151125
  Serious: No
  Sender: FDA-Public Use
  Company Number: US-BAYER-2015-413724

PATIENT
  Sex: Female

DRUGS (10)
  1. SUTENT [Concomitant]
     Active Substance: SUNITINIB MALATE
     Dosage: 50 UNK, UNK
  2. TYLENOL WITH CODEINE [Concomitant]
     Active Substance: ACETAMINOPHEN\CODEINE PHOSPHATE
     Dosage: 300-30 MG, Q8HR, PRN
  3. CIPRO [Suspect]
     Active Substance: CIPROFLOXACIN HYDROCHLORIDE
  4. ESTRADIOL. [Concomitant]
     Active Substance: ESTRADIOL
     Dosage: 2 MG, UNK
  5. LISINOPRIL. [Concomitant]
     Active Substance: LISINOPRIL
     Dosage: 20 MG, UNK
  6. SIMVASTATIN. [Concomitant]
     Active Substance: SIMVASTATIN
     Dosage: 20 MG, UNK
  7. TYLENOL WITH CODEINE [Concomitant]
     Active Substance: ACETAMINOPHEN\CODEINE PHOSPHATE
     Dosage: 300-30 MG, Q8HR, PRN
  8. SUTENT [Concomitant]
     Active Substance: SUNITINIB MALATE
     Dosage: 50 MG, QD
  9. SUTENT [Concomitant]
     Active Substance: SUNITINIB MALATE
     Dosage: 50 UNK, UNK
  10. SUTENT [Concomitant]
     Active Substance: SUNITINIB MALATE
     Dosage: 50 UNK, QD FOR 4 WEEKS ON 2 WEEKS OFF
     Route: 048

REACTIONS (1)
  - Drug hypersensitivity [None]
